FAERS Safety Report 16003361 (Version 1)
Quarter: 2019Q1

REPORT INFORMATION
  Report Type: Other
  Country: CM (occurrence: CM)
  Receive Date: 20190224
  Receipt Date: 20190224
  Transmission Date: 20190418
  Serious: Yes (Disabling, Other)
  Sender: FDA-Public Use
  Company Number: CM-DEXPHARM-20190130

PATIENT
  Age: 58 Year
  Sex: Female

DRUGS (1)
  1. DICLOFENAC SODIUM NON RELATED PRODUCT [Suspect]
     Active Substance: DICLOFENAC SODIUM
     Indication: ARTHRALGIA
     Route: 030

REACTIONS (4)
  - Finger amputation [None]
  - Embolia cutis medicamentosa [Recovered/Resolved with Sequelae]
  - Injection site pain [None]
  - Injection site discolouration [None]
